FAERS Safety Report 24352487 (Version 1)
Quarter: 2024Q3

REPORT INFORMATION
  Report Type: Spontaneous
  Country: US (occurrence: None)
  Receive Date: 20240923
  Receipt Date: 20240923
  Transmission Date: 20241016
  Serious: Yes (Hospitalization)
  Sender: Public
  Company Number: None

PATIENT
  Age: 81 Year
  Sex: Female

DRUGS (1)
  1. ORENCIA [Suspect]
     Active Substance: ABATACEPT
     Dosage: FREQUENCY : WEEKLY;?

REACTIONS (5)
  - Fall [None]
  - Fall [None]
  - Blood sodium decreased [None]
  - Therapy interrupted [None]
  - Device delivery system issue [None]

NARRATIVE: CASE EVENT DATE: 20240916
